FAERS Safety Report 4342451-X (Version None)
Quarter: 2004Q1

REPORT INFORMATION
  Report Type: 
  Country: None (occurrence: None)
  Receive Date: 20040213
  Receipt Date: 20031024
  Transmission Date: 20041129
  Serious: Yes (Life-Threatening)
  Sender: FDA-Public Use
  Company Number: 345307

PATIENT
  Age: 45 Year
  Sex: Male
  Weight: 73.5 kg

DRUGS (2)
  1. PEGASYS [Suspect]
     Indication: HEPATITIS C
     Dosage: 10 MCG 1 PER 1 WEEK SUBCUTANEOUS
     Route: 058
     Dates: start: 20030228, end: 20030514
  2. COPEGUS [Suspect]
     Indication: HEPATITIS C
     Dosage: 1000 MG DAILY ORAL
     Route: 048
     Dates: start: 20030228, end: 20030514

REACTIONS (1)
  - MYCOBACTERIUM AVIUM COMPLEX INFECTION [None]
